FAERS Safety Report 10420681 (Version 1)
Quarter: 2014Q3

REPORT INFORMATION
  Report Type: Spontaneous
  Country: US (occurrence: None)
  Receive Date: 20140829
  Receipt Date: 20140829
  Transmission Date: 20150326
  Serious: Yes (Disabling)
  Sender: FDA-Public Use
  Company Number: None

PATIENT
  Age: 41 Year
  Sex: Male
  Weight: 65.77 kg

DRUGS (1)
  1. ACCUTANE [Suspect]
     Active Substance: ISOTRETINOIN
     Indication: ACNE
     Dosage: 1 A DAY ONCE DAILY TAKEN BY MOUTH
     Route: 048
     Dates: start: 19890701, end: 19891225

REACTIONS (6)
  - Dry skin [None]
  - Behcet^s syndrome [None]
  - Abdominal pain upper [None]
  - Haematochezia [None]
  - Epistaxis [None]
  - Irritable bowel syndrome [None]

NARRATIVE: CASE EVENT DATE: 20130416
